FAERS Safety Report 4365596-7 (Version None)
Quarter: 2004Q2

REPORT INFORMATION
  Report Type: 
  Country: None (occurrence: None)
  Receive Date: 20040526
  Receipt Date: 20040517
  Transmission Date: 20050107
  Serious: Yes (Death, Hospitalization, Other)
  Sender: FDA-Public Use
  Company Number: DE-MERCK-0405DEU00122

PATIENT
  Age: 69 Year
  Sex: Female
  Weight: 112 kg

DRUGS (7)
  1. DIGITOXIN TAB [Concomitant]
     Indication: CARDIAC FAILURE CHRONIC
     Route: 048
     Dates: start: 19990101, end: 20031231
  2. METOPROLOL SUCCINATE [Concomitant]
     Indication: HYPERTENSION
     Route: 048
     Dates: start: 20020101, end: 20031231
  3. PHENPROCOUMON [Suspect]
     Indication: ARRHYTHMIA
     Route: 048
     Dates: start: 20000101, end: 20031231
  4. PHENPROCOUMON [Suspect]
     Indication: THROMBOSIS PROPHYLAXIS
     Route: 048
     Dates: start: 20000101, end: 20031231
  5. VIOXX [Suspect]
     Indication: PAIN
     Route: 048
     Dates: start: 20030601, end: 20031231
  6. TRAMADOL HYDROCHLORIDE [Suspect]
     Indication: PAIN
     Route: 048
     Dates: start: 20030601, end: 20031231
  7. XIPAMIDE [Concomitant]
     Indication: HYPERTENSION
     Route: 048
     Dates: start: 20020101, end: 20031231

REACTIONS (4)
  - DRUG INTERACTION [None]
  - GASTRITIS EROSIVE [None]
  - GASTROINTESTINAL HAEMORRHAGE [None]
  - PROTHROMBIN TIME PROLONGED [None]
